FAERS Safety Report 9485934 (Version 1)
Quarter: 2013Q3

REPORT INFORMATION
  Report Type: Spontaneous
  Country: US (occurrence: None)
  Receive Date: 20130827
  Receipt Date: 20130827
  Transmission Date: 20140515
  Serious: No
  Sender: FDA-Public Use
  Company Number: None

PATIENT
  Age: 66 Year
  Sex: Male
  Weight: 80 kg

DRUGS (1)
  1. CEFTAROLINE [Suspect]
     Indication: OSTEOMYELITIS
     Route: 042
     Dates: start: 20130802, end: 20130822

REACTIONS (2)
  - Rash [None]
  - Pruritus [None]
